FAERS Safety Report 9605565 (Version 1)
Quarter: 2013Q4

REPORT INFORMATION
  Report Type: Spontaneous
  Country: US (occurrence: US)
  Receive Date: 20131008
  Receipt Date: 20131008
  Transmission Date: 20140711
  Serious: No
  Sender: FDA-Public Use
  Company Number: US-PFIZER INC-2013286480

PATIENT
  Age: 51 Year
  Sex: Female
  Weight: 88.89 kg

DRUGS (8)
  1. LYRICA [Suspect]
     Indication: NEUROPATHY PERIPHERAL
     Dosage: 150 MG, 2X/DAY
     Dates: start: 2012
  2. GLIMEPIRIDE [Concomitant]
     Indication: DIABETES MELLITUS
     Dosage: 2 MG, DAILY
  3. ADVAIR [Concomitant]
     Indication: CHRONIC OBSTRUCTIVE PULMONARY DISEASE
     Dosage: [FLUTICASONE PROPIONATE 250MG]/ [SALMETEROL 50MG], 2X/DAY
  4. JANUVIA [Concomitant]
     Dosage: 100 MG, DAILY
     Route: 048
  5. CRESTOR [Concomitant]
     Indication: BLOOD CHOLESTEROL INCREASED
     Dosage: 20 MG, DAILY
  6. LISINOPRIL [Concomitant]
     Dosage: 5 MG, DAILY
  7. CITALOPRAM [Concomitant]
     Indication: DEPRESSION
     Dosage: 40 MG, DAILY
  8. SYNTHROID [Concomitant]
     Indication: THYROID DISORDER
     Dosage: 150 MG, DAILY

REACTIONS (1)
  - Drug ineffective [Not Recovered/Not Resolved]
